FAERS Safety Report 6710311-2 (Version None)
Quarter: 2010Q2

REPORT INFORMATION
  Report Type: 
  Country: None (occurrence: None)
  Receive Date: 20100504
  Receipt Date: 20100420
  Transmission Date: 20101027
  Serious: Yes (Other)
  Sender: FDA-Public Use
  Company Number: PHEH2010US03097

PATIENT
  Age: 67 Year
  Sex: Male

DRUGS (17)
  1. ZOMETA [Suspect]
     Indication: METASTASES TO BONE
     Route: 042
  2. AFINITOR [Concomitant]
     Route: 048
  3. MEGACE [Concomitant]
     Dosage: 40 MG/ML
     Route: 048
  4. METHADONE HCL [Concomitant]
     Dosage: 5 MG, UNK
     Route: 048
  5. PERCOCET [Concomitant]
     Dosage: 5-325 MG
     Route: 048
  6. REGLAN [Concomitant]
     Dosage: 10 MG, UNK
     Route: 048
  7. OXYCODONE [Concomitant]
     Dosage: 5 MG/ 5 ML
     Route: 048
  8. PROCHLORPERAZINE [Concomitant]
     Dosage: 10 MG, UNK
     Route: 048
  9. PRILOSEC [Concomitant]
     Dosage: 20 MG, UNK
     Route: 048
  10. BEVACIZUMAB [Concomitant]
     Route: 042
  11. CHLORHEXIDINE GLUCONATE [Concomitant]
     Dosage: 0.12 % MT SOL
  12. LEVEMIR [Concomitant]
  13. BYETTA [Concomitant]
     Dosage: 250 MCG / ML
  14. METFORMIN HCL [Concomitant]
     Dosage: 1000 MG, UNK
     Route: 048
  15. ACTOS [Concomitant]
     Dosage: 45 MG, UNK
  16. DIOVAN [Concomitant]
     Dosage: 320 MG, UNK
     Route: 048
  17. AMLODIPINE [Concomitant]
     Dosage: 10 MG, UNK
     Route: 048

REACTIONS (2)
  - OSTEONECROSIS [None]
  - PAIN IN JAW [None]
